FAERS Safety Report 8106285-2 (Version None)
Quarter: 2012Q1

REPORT INFORMATION
  Report Type: 
  Country: None (occurrence: None)
  Receive Date: 20120202
  Receipt Date: 20120118
  Transmission Date: 20120608
  Serious: Yes (Hospitalization, Other)
  Sender: FDA-Public Use
  Company Number: CA-JNJFOC-20120113498

PATIENT
  Sex: Female
  Weight: 61 kg

DRUGS (10)
  1. REMICADE [Suspect]
     Indication: CROHN'S DISEASE
     Route: 042
     Dates: start: 20071023
  2. WELLBUTRIN [Concomitant]
     Route: 065
  3. CESAMET [Concomitant]
     Route: 065
  4. IMURAN [Concomitant]
     Route: 065
  5. ONDANSETRON [Concomitant]
     Route: 065
  6. LYRICA [Concomitant]
     Route: 065
  7. MARIJUANA [Concomitant]
     Route: 065
  8. PERINDOPRIL ERBUMINE [Concomitant]
     Route: 065
  9. OXYCODONE HCL [Concomitant]
     Route: 065
  10. REMICADE [Suspect]
     Indication: PYODERMA GANGRENOSUM
     Route: 042
     Dates: start: 20071023

REACTIONS (1)
  - RENAL FAILURE [None]
